FAERS Safety Report 21300599 (Version 1)
Quarter: 2022Q3

REPORT INFORMATION
  Report Type: Spontaneous
  Country: JP (occurrence: JP)
  Receive Date: 20220907
  Receipt Date: 20220907
  Transmission Date: 20221027
  Serious: No
  Sender: FDA-Public Use
  Company Number: JP-MSD-2208JPN000642J

PATIENT
  Age: 68 Year
  Sex: Female

DRUGS (8)
  1. LAGEVRIO [Suspect]
     Active Substance: MOLNUPIRAVIR
     Indication: COVID-19 treatment
     Dosage: 400 MILLIGRAM, BID
     Route: 048
     Dates: start: 20220801, end: 20220803
  2. CLARITHROMYCIN [Concomitant]
     Active Substance: CLARITHROMYCIN
     Dosage: 200 MILLIGRAM, BID
     Route: 048
     Dates: start: 20220801, end: 20220803
  3. HERBALS [Concomitant]
     Active Substance: HERBALS
     Dosage: 7.5 GRAM, TID
     Route: 048
     Dates: start: 20220801, end: 20220805
  4. CARBOCYSTEINE [Concomitant]
     Active Substance: CARBOCYSTEINE
     Dosage: 500 MILLIGRAM, TID
     Route: 048
     Dates: start: 20220801, end: 20220805
  5. CLOPERASTINE FENDIZOATE [Concomitant]
     Active Substance: CLOPERASTINE FENDIZOATE
     Dosage: 10 MILLIGRAM, TID
     Route: 048
     Dates: start: 20220801, end: 20220805
  6. SP [DEQUALINIUM CHLORIDE] [Concomitant]
     Dosage: 0.25 DOSAGE FORM
     Route: 048
     Dates: start: 20220801, end: 20220810
  7. ISODINE [Concomitant]
     Active Substance: POVIDONE-IODINE
     Dosage: 30 MILLIGRAM
     Route: 048
  8. CALONAL [Concomitant]
     Active Substance: ACETAMINOPHEN
     Dosage: 200 MILLIGRAM, PRN
     Route: 048
     Dates: start: 20220801, end: 20220805

REACTIONS (2)
  - Urticaria [Recovering/Resolving]
  - Underdose [Unknown]

NARRATIVE: CASE EVENT DATE: 20220801
